FAERS Safety Report 13301669 (Version 1)
Quarter: 2017Q1

REPORT INFORMATION
  Report Type: Spontaneous
  Country: US (occurrence: US)
  Receive Date: 20170307
  Receipt Date: 20170307
  Transmission Date: 20170428
  Serious: Yes (Other)
  Sender: FDA-Public Use
  Company Number: US-TAKEDA-2017TUS004825

PATIENT
  Sex: Female

DRUGS (2)
  1. REXULTI [Concomitant]
     Active Substance: BREXPIPRAZOLE
     Dosage: 3 MG, UNK
  2. TRINTELLIX [Suspect]
     Active Substance: VORTIOXETINE HYDROBROMIDE
     Indication: DEPRESSION
     Dosage: 10 MG, UNK
     Route: 065

REACTIONS (1)
  - Herpes zoster [Not Recovered/Not Resolved]
